FAERS Safety Report 6834205-7 (Version None)
Quarter: 2010Q3

REPORT INFORMATION
  Report Type: 
  Country: None (occurrence: None)
  Receive Date: 20100712
  Receipt Date: 20070410
  Transmission Date: 20110219
  Serious: No
  Sender: FDA-Public Use
  Company Number: US-PFIZER INC-2007029697

PATIENT
  Sex: Female
  Weight: 49.9 kg

DRUGS (3)
  1. CHANTIX [Suspect]
     Indication: SMOKING CESSATION THERAPY
     Dates: start: 20070301, end: 20070408
  2. HYDROCODONE BITARTRATE [Concomitant]
     Indication: SYSTEMIC LUPUS ERYTHEMATOSUS
  3. ADDERALL 10 [Concomitant]
     Indication: NARCOLEPSY

REACTIONS (2)
  - NAUSEA [None]
  - VOMITING [None]
